FAERS Safety Report 9678097 (Version 2)
Quarter: 2013Q4

REPORT INFORMATION
  Report Type: Spontaneous
  Country: US (occurrence: US)
  Receive Date: 20131108
  Receipt Date: 20131219
  Transmission Date: 20140711
  Serious: Yes (Other)
  Sender: FDA-Public Use
  Company Number: US-MERCK-1311USA000295

PATIENT
  Age: 76 Year
  Sex: Male

DRUGS (9)
  1. SINEMET [Suspect]
     Indication: PARKINSON^S DISEASE
     Dosage: 1/2 TABLET, 5 TIMES PER DAY
     Route: 048
     Dates: start: 1994
  2. SINEMET CR [Suspect]
     Indication: PARKINSON^S DISEASE
     Dosage: UNK
     Route: 048
     Dates: start: 1994
  3. TASMAR (TOLCAPONE) [Concomitant]
  4. ZOLOFT [Concomitant]
  5. MIRAPEX [Concomitant]
  6. LIPITOR [Concomitant]
  7. DILTIAZEM HYDROCHLORIDE [Concomitant]
     Route: 048
  8. VICODIN [Concomitant]
  9. VALIUM [Concomitant]

REACTIONS (11)
  - Vascular graft [Not Recovered/Not Resolved]
  - Renal cancer [Not Recovered/Not Resolved]
  - Lung neoplasm malignant [Not Recovered/Not Resolved]
  - Cholecystitis infective [Not Recovered/Not Resolved]
  - Renal mass [Not Recovered/Not Resolved]
  - Prostatic disorder [Not Recovered/Not Resolved]
  - Gastrointestinal disorder [Not Recovered/Not Resolved]
  - Adverse event [Not Recovered/Not Resolved]
  - Movement disorder [Not Recovered/Not Resolved]
  - Tremor [Not Recovered/Not Resolved]
  - Gait disturbance [Not Recovered/Not Resolved]
